FAERS Safety Report 5873263-3 (Version None)
Quarter: 2008Q3

REPORT INFORMATION
  Report Type: 
  Country: None (occurrence: None)
  Receive Date: 20080908
  Receipt Date: 20080828
  Transmission Date: 20090109
  Serious: Yes (Other)
  Sender: FDA-Public Use
  Company Number: FR-JNJFOC-20080801681

PATIENT
  Sex: Male
  Weight: 66 kg

DRUGS (9)
  1. REMICADE [Suspect]
     Dosage: 5TH INFUSION
     Route: 042
  2. REMICADE [Suspect]
     Dosage: 4TH INFUSION
     Route: 042
  3. REMICADE [Suspect]
     Dosage: 3RD INFUSION
     Route: 042
  4. REMICADE [Suspect]
     Dosage: 2ND INFUSION
     Route: 042
  5. REMICADE [Suspect]
     Indication: DRUG USE FOR UNKNOWN INDICATION
     Dosage: 1ST INFUSION
     Route: 042
  6. ENBREL [Concomitant]
  7. HUMIRA [Concomitant]
  8. CELEBREX [Concomitant]
  9. DEXTROPROPOXYPHENE/PARACETAMOL [Concomitant]

REACTIONS (5)
  - AURICULAR SWELLING [None]
  - EYE OEDEMA [None]
  - RASH [None]
  - SKIN DISCOLOURATION [None]
  - SKIN EXFOLIATION [None]
